FAERS Safety Report 4322251-7 (Version None)
Quarter: 2004Q1

REPORT INFORMATION
  Report Type: 
  Country: None (occurrence: None)
  Receive Date: 20040323
  Receipt Date: 20040311
  Transmission Date: 20041129
  Serious: Yes (Hospitalization)
  Sender: FDA-Public Use
  Company Number: FLUV00304000557

PATIENT
  Age: 80 Year
  Sex: Female
  Weight: 39 kg

DRUGS (11)
  1. LUVOX [Suspect]
     Indication: DEPRESSION
     Dosage: 25 MG DAILY PO
     Dates: start: 20040212, end: 20040215
  2. SG () [Suspect]
     Indication: HEADACHE
     Dosage: 1 G  DAILY PO
     Dates: start: 20040212, end: 20040215
  3. NIVADIL (NILVADIPINE) [Concomitant]
  4. ZANTAC [Concomitant]
  5. ASPIRIN [Concomitant]
  6. MERISLON (BETAHISTINE HYDROCHLORIDE) [Concomitant]
  7. ADETPHOS (ADENOSINE TRIPHOSPHATE, DISODIUM SALT) [Concomitant]
  8. HACHIMIJIO-GAN (HACHIMIJIO-GAN) [Concomitant]
  9. BIOFERMIN (PYRROLIDINE) [Concomitant]
  10. FORSENID (SENNOSIDE A+B) [Concomitant]
  11. LOXONIN (LOXOPROFEN SODIUM) [Concomitant]

REACTIONS (5)
  - BLOOD POTASSIUM DECREASED [None]
  - HAEMATURIA [None]
  - PROTEIN TOTAL DECREASED [None]
  - STEVENS-JOHNSON SYNDROME [None]
  - WHITE BLOOD CELLS URINE POSITIVE [None]
